FAERS Safety Report 15965658 (Version 1)
Quarter: 2019Q1

REPORT INFORMATION
  Report Type: Report from Study
  Country: None (occurrence: US)
  Receive Date: 20190215
  Receipt Date: 20190215
  Transmission Date: 20190418
  Serious: Yes (Other)
  Sender: FDA-Public Use
  Company Number: US-INSMED, INC.-US-INS-19-00137

PATIENT
  Age: 61 Year
  Sex: Female

DRUGS (2)
  1. LAMIRA NEBULIZER SYSTEM [Suspect]
     Active Substance: DEVICE
  2. ARIKAYCE [Suspect]
     Active Substance: AMIKACIN
     Indication: MYCOBACTERIUM AVIUM COMPLEX INFECTION
     Route: 055
     Dates: start: 20181231, end: 20190201

REACTIONS (5)
  - Pulmonary fibrosis [Unknown]
  - Cough [Recovering/Resolving]
  - Aphonia [Recovering/Resolving]
  - Pneumonia [Unknown]
  - Haemoptysis [Recovering/Resolving]

NARRATIVE: CASE EVENT DATE: 20181231
